FAERS Safety Report 6399344-6 (Version None)
Quarter: 2009Q4

REPORT INFORMATION
  Report Type: 
  Country: None (occurrence: None)
  Receive Date: 20091014
  Receipt Date: 20080212
  Transmission Date: 20100525
  Serious: Yes (Other)
  Sender: FDA-Public Use
  Company Number: US-ASTRAZENECA-2006UW22423

PATIENT
  Age: 17531 Day
  Sex: Female
  Weight: 107 kg

DRUGS (21)
  1. SEROQUEL [Suspect]
     Indication: BIPOLAR DISORDER
     Dosage: 800 MG AT PM, 300 MG AT AM
     Route: 048
     Dates: start: 20021101
  2. SEROQUEL [Suspect]
     Indication: DEPRESSION
     Dosage: 800 MG AT PM, 300 MG AT AM
     Route: 048
     Dates: start: 20021101
  3. SEROQUEL [Suspect]
     Dosage: 100 MG-300 MG
     Route: 048
     Dates: start: 20040112
  4. SEROQUEL [Suspect]
     Dosage: 100 MG-300 MG
     Route: 048
     Dates: start: 20040112
  5. TOPAMAX [Concomitant]
  6. LITHIUM [Concomitant]
  7. SYNTHROID [Concomitant]
     Dates: start: 20070910
  8. PENTOXIFYLLINE [Concomitant]
     Dates: start: 20060104
  9. ACTOS [Concomitant]
     Dosage: 15 MG-45 MG
     Dates: start: 20040107
  10. MICARDIS [Concomitant]
     Dates: start: 20030527
  11. NORTRIPTYLINE HYDROCHLORIDE [Concomitant]
     Dates: start: 20040107
  12. CELEBREX [Concomitant]
     Dates: start: 20050315
  13. HYDROCODONE [Concomitant]
     Dosage: AS REQUIRED
     Dates: start: 20050315
  14. METHOCARBAMOL [Concomitant]
     Dates: start: 20050315
  15. ALBUTEROL [Concomitant]
     Dates: start: 20070910
  16. LAMICTAL [Concomitant]
     Dates: start: 20050315
  17. AMRIX [Concomitant]
     Dates: start: 20030527
  18. FUROSEMIDE [Concomitant]
     Dates: start: 20030527
  19. ZYPREXA [Concomitant]
     Dates: start: 20030527
  20. DEPAKOTE [Concomitant]
     Dates: start: 20030527
  21. PREVACID [Concomitant]
     Dates: start: 20030527

REACTIONS (6)
  - DIABETES MELLITUS [None]
  - DIABETIC NEUROPATHY [None]
  - INJURY [None]
  - SUICIDAL IDEATION [None]
  - TARDIVE DYSKINESIA [None]
  - TYPE 2 DIABETES MELLITUS [None]
